FAERS Safety Report 10463380 (Version 1)
Quarter: 2014Q3

REPORT INFORMATION
  Report Type: Spontaneous
  Country: US (occurrence: US)
  Receive Date: 20140919
  Receipt Date: 20140919
  Transmission Date: 20150326
  Serious: No
  Sender: FDA-Public Use
  Company Number: US-SHIRE-US201406030

PATIENT
  Age: 6 Year
  Sex: Male

DRUGS (1)
  1. VYVANSE [Suspect]
     Active Substance: LISDEXAMFETAMINE DIMESYLATE
     Indication: PRODUCT USED FOR UNKNOWN INDICATION
     Dosage: 20 MG, UNKNOWN
     Route: 048
     Dates: start: 201403

REACTIONS (5)
  - Stubbornness [Unknown]
  - Negativism [Unknown]
  - Psychomotor hyperactivity [Unknown]
  - Drug effect variable [Unknown]
  - Weight gain poor [Unknown]

NARRATIVE: CASE EVENT DATE: 2014
